FAERS Safety Report 6248940-5 (Version None)
Quarter: 2009Q2

REPORT INFORMATION
  Report Type: 
  Country: None (occurrence: None)
  Receive Date: 20090629
  Receipt Date: 20090617
  Transmission Date: 20091009
  Serious: Yes (Death, Other)
  Sender: FDA-Public Use
  Company Number: NZ-AVENTIS-200916309GDDC

PATIENT
  Age: 58 Year
  Sex: Female

DRUGS (5)
  1. LEFLUNOMIDE [Suspect]
     Dates: end: 20081101
  2. ADALIMUMAB [Suspect]
     Route: 058
     Dates: end: 20081101
  3. PREDNISONE TAB [Suspect]
     Dosage: DOSE: UNK
     Dates: end: 20081101
  4. OMEPRAZOLE [Concomitant]
     Dosage: DOSE: UNK
  5. CALCITRIOL [Concomitant]
     Dosage: DOSE: UNK

REACTIONS (4)
  - CARDIAC ARREST [None]
  - DYSPNOEA [None]
  - LUNG INFILTRATION [None]
  - RESPIRATORY FAILURE [None]
